FAERS Safety Report 18490783 (Version 1)
Quarter: 2020Q4

REPORT INFORMATION
  Report Type: Spontaneous
  Country: US (occurrence: US)
  Receive Date: 20201109
  Receipt Date: 20201109
  Transmission Date: 20210114
  Serious: Yes (Death, Life-Threatening, Other)
  Sender: FDA-Public Use
  Company Number: None

PATIENT
  Age: 67 Year
  Sex: Female
  Weight: 68.04 kg

DRUGS (9)
  1. TRAZODONE [Suspect]
     Active Substance: TRAZODONE HYDROCHLORIDE
  2. FAMOTIDINE. [Concomitant]
     Active Substance: FAMOTIDINE
  3. METFORMIN [Suspect]
     Active Substance: METFORMIN HYDROCHLORIDE
  4. MULTI VITAMIN [Concomitant]
     Active Substance: VITAMINS
  5. GLIPIZIDE 5MG [Suspect]
     Active Substance: GLIPIZIDE
  6. ATORVASTATIN 10MG [Suspect]
     Active Substance: ATORVASTATIN
     Indication: DARK CIRCLES UNDER EYES
     Dosage: ?          QUANTITY:1 DF DOSAGE FORM;?
     Route: 048
     Dates: start: 20200923, end: 20200930
  7. IBUPROFEN. [Concomitant]
     Active Substance: IBUPROFEN
  8. FISH OIL [Concomitant]
     Active Substance: FISH OIL
  9. SENNA NTURAL [Concomitant]

REACTIONS (9)
  - Near death experience [None]
  - Product prescribing error [None]
  - Product quality issue [None]
  - Insurance issue [None]
  - Victim of crime [None]
  - Ocular icterus [None]
  - Periorbital disorder [None]
  - Skin discolouration [None]
  - Yellow skin [None]

NARRATIVE: CASE EVENT DATE: 20200923
